FAERS Safety Report 10223408 (Version 2)
Quarter: 2014Q3

REPORT INFORMATION
  Report Type: Spontaneous
  Country: CA (occurrence: CA)
  Receive Date: 20140609
  Receipt Date: 20140717
  Transmission Date: 20150326
  Serious: Yes (Other)
  Sender: FDA-Public Use
  Company Number: CA-ROCHE-1414694

PATIENT
  Age: 74 Year
  Sex: Female

DRUGS (4)
  1. XOLAIR [Suspect]
     Active Substance: OMALIZUMAB
     Indication: ASTHMA
     Route: 058
     Dates: start: 20100413
  2. ALVESCO [Concomitant]
     Active Substance: CICLESONIDE
  3. PREDNISONE. [Concomitant]
     Active Substance: PREDNISONE
  4. SEREVENT [Concomitant]
     Active Substance: SALMETEROL XINAFOATE

REACTIONS (3)
  - Wrist fracture [Unknown]
  - Fall [Unknown]
  - Diverticulitis [Unknown]

NARRATIVE: CASE EVENT DATE: 201405
